FAERS Safety Report 6655874-0 (Version None)
Quarter: 2010Q1

REPORT INFORMATION
  Report Type: 
  Country: None (occurrence: None)
  Receive Date: 20100329
  Receipt Date: 20100317
  Transmission Date: 20100710
  Serious: Yes (Other)
  Sender: FDA-Public Use
  Company Number: US-ELI_LILLY_AND_COMPANY-US201003004606

PATIENT
  Sex: Female
  Weight: 86.168 kg

DRUGS (13)
  1. BYETTA [Suspect]
     Indication: TYPE 2 DIABETES MELLITUS
     Dosage: 5 UG, 2/D
     Dates: start: 20050101, end: 20050101
  2. BYETTA [Suspect]
     Dosage: 10 UG, 2/D
     Dates: start: 20050101, end: 20060101
  3. BYETTA [Suspect]
     Dosage: 10 UG, 2/D
     Dates: start: 20060101
  4. AMBIEN [Concomitant]
     Dosage: 10 MG, UNK
     Route: 048
  5. ARIMIDEX [Concomitant]
     Indication: BREAST CANCER
     Route: 048
  6. NORVASC [Concomitant]
     Route: 048
  7. MICARDIS [Concomitant]
     Route: 048
  8. ULTRAM [Concomitant]
     Indication: ARTHRITIS
     Route: 048
  9. HYDROCHLOROTHIAZIDE [Concomitant]
     Route: 048
  10. SYNTHROID [Concomitant]
     Route: 048
  11. CYMBALTA [Concomitant]
     Route: 048
  12. CELEBREX [Concomitant]
     Route: 048
  13. PREVACID [Concomitant]
     Route: 048

REACTIONS (6)
  - BREAST CANCER [None]
  - DEPRESSION [None]
  - NASOPHARYNGITIS [None]
  - NAUSEA [None]
  - ROTATOR CUFF SYNDROME [None]
  - VOMITING [None]
